FAERS Safety Report 14985017 (Version 4)
Quarter: 2019Q4

REPORT INFORMATION
  Report Type: Spontaneous
  Country: US (occurrence: US)
  Receive Date: 20180607
  Receipt Date: 20191022
  Transmission Date: 20200122
  Serious: Yes (Other)
  Sender: FDA-Public Use
  Company Number: US-ELI_LILLY_AND_COMPANY-US201806000412

PATIENT
  Sex: Male

DRUGS (4)
  1. VIAGRA [Suspect]
     Active Substance: SILDENAFIL CITRATE
     Indication: PRODUCT USED FOR UNKNOWN INDICATION
     Dosage: 100 MG, 2/W(100 MG AND 50 MG)
     Route: 065
     Dates: start: 20070621, end: 20151022
  2. FLOMAX [Concomitant]
     Active Substance: TAMSULOSIN HYDROCHLORIDE
     Indication: BENIGN PROSTATIC HYPERPLASIA
  3. CIALIS [Suspect]
     Active Substance: TADALAFIL
     Dosage: 20 MG, 2/W(10 OR 20 MG)
     Route: 065
     Dates: end: 201504
  4. CIALIS [Suspect]
     Active Substance: TADALAFIL
     Indication: PRODUCT USED FOR UNKNOWN INDICATION
     Dosage: UNK, UNKNOWN
     Route: 065
     Dates: start: 20140716, end: 20140716

REACTIONS (7)
  - Type 2 diabetes mellitus [Unknown]
  - Malignant melanoma [Unknown]
  - Actinic keratosis [Recovered/Resolved]
  - Basal cell carcinoma [Recovered/Resolved]
  - Chronic kidney disease [Recovering/Resolving]
  - Peripheral artery occlusion [Recovering/Resolving]
  - Hypertension [Unknown]

NARRATIVE: CASE EVENT DATE: 2015
